FAERS Safety Report 10823260 (Version 1)
Quarter: 2015Q1

REPORT INFORMATION
  Report Type: Report from Study
  Country: US (occurrence: US)
  Receive Date: 20150218
  Receipt Date: 20150218
  Transmission Date: 20150721
  Serious: No
  Sender: FDA-Public Use
  Company Number: US-ABBVIE-14K-163-1308501-00

PATIENT
  Age: 19 Year
  Sex: Female

DRUGS (2)
  1. HUMIRA [Suspect]
     Active Substance: ADALIMUMAB
     Indication: PSORIATIC ARTHROPATHY
     Route: 065
     Dates: start: 20140822
  2. HUMIRA [Suspect]
     Active Substance: ADALIMUMAB
     Route: 065

REACTIONS (5)
  - Tonsillitis [Recovering/Resolving]
  - Lymphadenopathy [Recovering/Resolving]
  - Dysphagia [Recovering/Resolving]
  - Oropharyngeal pain [Recovering/Resolving]
  - Pharyngitis streptococcal [Recovering/Resolving]

NARRATIVE: CASE EVENT DATE: 20141101
